FAERS Safety Report 10595727 (Version 2)
Quarter: 2015Q1

REPORT INFORMATION
  Report Type: Spontaneous
  Country: US (occurrence: None)
  Receive Date: 20141119
  Receipt Date: 20150206
  Transmission Date: 20150720
  Serious: Yes (Hospitalization)
  Sender: FDA-Public Use
  Company Number: 2014CT000186

PATIENT
  Age: 75 Year
  Sex: Female
  Weight: 72.58 kg

DRUGS (23)
  1. METHIMAZOLE. [Concomitant]
     Active Substance: METHIMAZOLE
  2. RECLAST [Concomitant]
     Active Substance: ZOLEDRONIC ACID
  3. SPIRONOLACTONE. [Concomitant]
     Active Substance: SPIRONOLACTONE
  4. VYTORIN [Concomitant]
     Active Substance: EZETIMIBE\SIMVASTATIN
  5. HUMALOG [Concomitant]
     Active Substance: INSULIN LISPRO
  6. SURFAK STOOL SOFTENER [Concomitant]
     Active Substance: DOCUSATE CALCIUM
  7. VITAMIN D3 [Concomitant]
     Active Substance: CHOLECALCIFEROL
  8. CALCIUM CARBONATE. [Concomitant]
     Active Substance: CALCIUM CARBONATE
  9. FERROUS SULFATE [Concomitant]
     Active Substance: FERROUS SULFATE\FERROUS SULFATE, DRIED
  10. VITAMIN C [Concomitant]
     Active Substance: ASCORBIC ACID
  11. AMITIZA [Concomitant]
     Active Substance: LUBIPROSTONE
  12. PREMARIN [Concomitant]
     Active Substance: ESTROGENS, CONJUGATED
  13. VOLTAREN [Concomitant]
     Active Substance: DICLOFENAC SODIUM
  14. VITAMIN D3 [Concomitant]
     Active Substance: CHOLECALCIFEROL
  15. KORLYM [Suspect]
     Active Substance: MIFEPRISTONE
     Indication: PITUITARY-DEPENDENT CUSHING^S SYNDROME
     Route: 048
     Dates: start: 20141020, end: 20141102
  16. DIOVAN [Suspect]
     Active Substance: VALSARTAN
  17. SINGULAIR [Concomitant]
     Active Substance: MONTELUKAST SODIUM
  18. LANTUS [Concomitant]
     Active Substance: INSULIN GLARGINE
  19. MAGNESIUM CHLORIDE. [Concomitant]
     Active Substance: MAGNESIUM CHLORIDE
  20. GLIPIZIDE XL [Concomitant]
     Active Substance: GLIPIZIDE
  21. PRAVASTATIN [Concomitant]
     Active Substance: PRAVASTATIN\PRAVASTATIN SODIUM
  22. ZOVIRAX [Concomitant]
     Active Substance: ACYCLOVIR
  23. VITAMIN B12 [Concomitant]
     Active Substance: CYANOCOBALAMIN

REACTIONS (8)
  - Fatigue [None]
  - Hypertension [None]
  - Dyspnoea [None]
  - Asthenia [None]
  - Blood potassium decreased [None]
  - Blood glucose increased [None]
  - Myalgia [None]
  - Dizziness [None]

NARRATIVE: CASE EVENT DATE: 201410
